FAERS Safety Report 13114631 (Version 1)
Quarter: 2017Q1

REPORT INFORMATION
  Report Type: Report from Study
  Country: US (occurrence: US)
  Receive Date: 20170113
  Receipt Date: 20170113
  Transmission Date: 20170428
  Serious: Yes (Other)
  Sender: FDA-Public Use
  Company Number: US-009507513-1701USA001734

PATIENT
  Age: 29 Year
  Sex: Female

DRUGS (1)
  1. IMPLANON [Suspect]
     Active Substance: ETONOGESTREL
     Indication: CHEMICAL CONTRACEPTION
     Dosage: STRENGTH: 68 MG, RADIOPAQUE, ROUTE OF ADMINISTRATION: SYSTEMIC
     Dates: start: 20120709, end: 20141217

REACTIONS (2)
  - Pregnancy [Recovered/Resolved]
  - Maternal exposure before pregnancy [Recovered/Resolved]

NARRATIVE: CASE EVENT DATE: 20141230
